FAERS Safety Report 12983464 (Version 1)
Quarter: 2016Q4

REPORT INFORMATION
  Report Type: Spontaneous
  Country: DZ (occurrence: DZ)
  Receive Date: 20161129
  Receipt Date: 20161129
  Transmission Date: 20170207
  Serious: Yes (Hospitalization, Other)
  Sender: FDA-Public Use
  Company Number: DZ-ALEXION PHARMACEUTICALS INC-A201609040

PATIENT
  Age: 33 Year
  Sex: Male

DRUGS (5)
  1. CYCLOSPORINE. [Concomitant]
     Active Substance: CYCLOSPORINE
     Dosage: 2.5 CC, BID
     Route: 065
  2. CYCLOSPORINE. [Concomitant]
     Active Substance: CYCLOSPORINE
     Indication: PRODUCT USED FOR UNKNOWN INDICATION
     Dosage: 10 MG/KG, QD
     Route: 065
     Dates: start: 200809, end: 200907
  3. SOLIRIS [Suspect]
     Active Substance: ECULIZUMAB
     Indication: PAROXYSMAL NOCTURNAL HAEMOGLOBINURIA
     Dosage: UNK
     Route: 042
     Dates: start: 20120924
  4. CYCLOSPORINE. [Concomitant]
     Active Substance: CYCLOSPORINE
     Dosage: 5 MG/KG, QD
     Route: 065
     Dates: start: 201103, end: 201105
  5. SOLIRIS [Suspect]
     Active Substance: ECULIZUMAB
     Dosage: UNK
     Route: 042
     Dates: end: 20130923

REACTIONS (6)
  - Intestinal obstruction [Unknown]
  - Aplasia [Recovered/Resolved]
  - Infection [Unknown]
  - Platelet count decreased [Unknown]
  - Mucosal inflammation [Recovered/Resolved]
  - Thrombosis [Unknown]

NARRATIVE: CASE EVENT DATE: 201303
